FAERS Safety Report 4650607-1 (Version None)
Quarter: 2005Q2

REPORT INFORMATION
  Report Type: 
  Country: None (occurrence: None)
  Receive Date: 20050503
  Receipt Date: 20050421
  Transmission Date: 20051028
  Serious: Yes (Other)
  Sender: FDA-Public Use
  Company Number: CA-JNJFOC-20050405694

PATIENT
  Sex: Female
  Weight: 71.2 kg

DRUGS (12)
  1. REMICADE [Suspect]
     Indication: RHEUMATOID ARTHRITIS
     Route: 042
  2. PREDNISONE [Concomitant]
     Indication: RHEUMATOID ARTHRITIS
     Route: 049
  3. LOSEC [Concomitant]
     Indication: GASTROINTESTINAL DISORDER
     Route: 049
  4. ELAVIL [Concomitant]
     Indication: PAIN
     Dosage: 20 MG AT BEDTIME
     Route: 049
  5. SOTALOL HCL [Concomitant]
     Indication: ARRHYTHMIA
     Route: 049
  6. NITRO-SPRAY [Concomitant]
  7. NORVASC [Concomitant]
     Indication: HYPERTENSION
     Route: 049
  8. IMDUR [Concomitant]
     Indication: ANGINA PECTORIS
     Route: 049
  9. COUMADIN [Concomitant]
     Indication: ARRHYTHMIA
     Route: 049
  10. XALATAN [Concomitant]
     Indication: GLAUCOMA
  11. FOSAMAX [Concomitant]
     Indication: OSTEOPOROSIS
     Route: 049
  12. NEURONTIN [Concomitant]
     Route: 049

REACTIONS (2)
  - SCIATICA [None]
  - THORACIC VERTEBRAL FRACTURE [None]
